FAERS Safety Report 19571024 (Version 1)
Quarter: 2021Q3

REPORT INFORMATION
  Report Type: Other
  Country: US (occurrence: US)
  Receive Date: 20210716
  Receipt Date: 20210716
  Transmission Date: 20211014
  Serious: No
  Sender: FDA-Public Use
  Company Number: US-UROVANT SCIENCES GMBH-202105-URV-000201

PATIENT
  Sex: Female

DRUGS (1)
  1. GEMTESA [Suspect]
     Active Substance: VIBEGRON
     Indication: MICTURITION URGENCY
     Dosage: 75 MG, QD
     Route: 048
     Dates: start: 20210515, end: 20210515

REACTIONS (1)
  - Hot flush [Recovered/Resolved]
